FAERS Safety Report 9691082 (Version 4)
Quarter: 2014Q3

REPORT INFORMATION
  Report Type: Spontaneous
  Country: US (occurrence: US)
  Receive Date: 20131115
  Receipt Date: 20140929
  Transmission Date: 20150326
  Serious: Yes (Death, Hospitalization, Other)
  Sender: FDA-Public Use
  Company Number: US-MERCK-1311USA005837

PATIENT
  Sex: Female
  Weight: 77.55 kg

DRUGS (3)
  1. JANUVIA [Suspect]
     Active Substance: SITAGLIPTIN PHOSPHATE
     Indication: TYPE 2 DIABETES MELLITUS
     Dosage: 100 MG, QD
     Route: 048
     Dates: start: 20081017
  2. MILK OF MAGNESIA [Concomitant]
     Active Substance: MAGNESIUM HYDROXIDE
     Indication: DIARRHOEA
     Dosage: QD
     Dates: start: 20081017
  3. JANUVIA [Suspect]
     Active Substance: SITAGLIPTIN PHOSPHATE
     Indication: GLUCOSE TOLERANCE IMPAIRED

REACTIONS (25)
  - Metastases to peritoneum [Fatal]
  - Obstruction [Unknown]
  - Renal failure acute [Not Recovered/Not Resolved]
  - Blood glucose increased [Unknown]
  - Thrombocytopenia [Unknown]
  - Hyponatraemia [Recovering/Resolving]
  - Pancytopenia [Unknown]
  - Portal hypertension [Unknown]
  - Hyponatraemia [Recovering/Resolving]
  - Generalised oedema [Unknown]
  - Metastases to spine [Fatal]
  - Cardiac failure congestive [Unknown]
  - Weight increased [Unknown]
  - Acidosis [Unknown]
  - Cellulitis [Unknown]
  - Thrombocytopenia [Unknown]
  - Drug eruption [Recovered/Resolved]
  - Anaemia [Unknown]
  - Pancreatic carcinoma [Fatal]
  - Small intestinal obstruction [Recovering/Resolving]
  - Vomiting [Recovering/Resolving]
  - Helicobacter infection [Unknown]
  - Bone marrow toxicity [Unknown]
  - Bile duct stent insertion [Unknown]
  - Malignant pleural effusion [Unknown]

NARRATIVE: CASE EVENT DATE: 2009
